FAERS Safety Report 23618619 (Version 1)
Quarter: 2024Q1

REPORT INFORMATION
  Report Type: Spontaneous
  Country: US (occurrence: US)
  Receive Date: 20240311
  Receipt Date: 20240311
  Transmission Date: 20240410
  Serious: No
  Sender: FDA-Public Use
  Company Number: US-TRAVERE-2024TVT00232

PATIENT
  Age: 20 Year
  Sex: Male

DRUGS (1)
  1. FILSPARI [Suspect]
     Active Substance: SPARSENTAN
     Indication: IgA nephropathy
     Dosage: 200MG 1 TABLET DAILY
     Route: 048
     Dates: start: 20240222

REACTIONS (2)
  - Dizziness [Unknown]
  - Hypertension [Recovering/Resolving]
